FAERS Safety Report 7919262-9 (Version None)
Quarter: 2011Q4

REPORT INFORMATION
  Report Type: 
  Country: None (occurrence: None)
  Receive Date: 20111114
  Receipt Date: 20111107
  Transmission Date: 20120403
  Serious: Yes (Other)
  Sender: FDA-Public Use
  Company Number: AUR-APL-2011-05579

PATIENT
  Age: 73 Year
  Sex: Female
  Weight: 72.5755 kg

DRUGS (14)
  1. XENAZINE [Concomitant]
  2. LEXAPRO [Concomitant]
  3. ZOLPIDEM [Suspect]
     Indication: DYSKINESIA
     Dosage: 30 MG (30 MG, 3 IN 1 D), ORAL
     Route: 048
     Dates: start: 20110701
  4. LOVASTATIN [Concomitant]
  5. PROAIR (FLUTICASONE PROPIONATE) [Concomitant]
  6. ASPIRIN [Concomitant]
  7. AMLODIPINE [Concomitant]
  8. FLUTICASONE PROPIONATE [Concomitant]
  9. OMEPRAZOLE [Concomitant]
  10. LEVOTHYROXINE SODIUM [Concomitant]
  11. ADVAIR HFA [Concomitant]
  12. HYDROCHLOROTHIAZIDE [Concomitant]
  13. LORATADINE [Concomitant]
  14. TRAMADOL HCL [Concomitant]

REACTIONS (3)
  - DRUG TOLERANCE INCREASED [None]
  - FOOD INTERACTION [None]
  - DRUG EFFECT DECREASED [None]
